FAERS Safety Report 7575989-2 (Version None)
Quarter: 2011Q2

REPORT INFORMATION
  Report Type: 
  Country: None (occurrence: None)
  Receive Date: 20110628
  Receipt Date: 20110110
  Transmission Date: 20111010
  Serious: Yes (Disabling, Other)
  Sender: FDA-Public Use
  Company Number: US-BAYER-2011-006777

PATIENT
  Age: 58 Year
  Sex: Male
  Weight: 73 kg

DRUGS (17)
  1. NAPROXEN [Concomitant]
     Dosage: 500 MG, BID
     Route: 048
  2. ASPIRIN [Concomitant]
     Dosage: UNK
     Dates: start: 20041222
  3. LASIX [Concomitant]
     Dosage: 10 MG, UNK
     Route: 042
     Dates: start: 20041230
  4. TRASYLOL [Suspect]
     Indication: AORTIC VALVE REPLACEMENT
  5. LIPITOR [Concomitant]
     Dosage: UNK
     Dates: start: 20041222
  6. DOBUTREX [Concomitant]
     Dosage: UNK
     Dates: start: 20041230
  7. COREG [Concomitant]
     Dosage: UNK
     Dates: start: 20041222
  8. ZOSYN [Concomitant]
     Dosage: UNK
     Dates: start: 20041222
  9. TRASYLOL [Suspect]
     Indication: CORONARY ARTERY BYPASS
     Dosage: 100 ML, ONCE
     Route: 042
     Dates: start: 20041230, end: 20041230
  10. EPHEDRINE [Concomitant]
     Dosage: UNK
     Dates: start: 20041221
  11. NEOSYNEPHRINE [Concomitant]
     Dosage: UNK
     Dates: start: 20041221
  12. HEPARIN [Concomitant]
     Dosage: UNK
     Dates: start: 20041222
  13. LOPRESSOR [Concomitant]
     Dosage: UNK
     Dates: start: 20041222
  14. VANCOMYCIN [Concomitant]
     Dosage: 1 UNK, UNK
     Route: 042
     Dates: start: 20041228
  15. LEVOPHED [Concomitant]
     Dosage: 120 UNK, UNK
  16. VANCOMYCIN [Concomitant]
     Dosage: 1 G, UNK
     Route: 042
     Dates: start: 20041230
  17. NIPRIDE [Concomitant]
     Dosage: UNK
     Dates: start: 20041230

REACTIONS (15)
  - ANXIETY [None]
  - EMOTIONAL DISTRESS [None]
  - PARALYSIS [None]
  - DEPRESSION [None]
  - PSYCHIATRIC SYMPTOM [None]
  - RENAL FAILURE [None]
  - FEAR [None]
  - PAIN [None]
  - FEAR OF DEATH [None]
  - RENAL INJURY [None]
  - MULTI-ORGAN FAILURE [None]
  - CEREBROVASCULAR ACCIDENT [None]
  - NERVOUSNESS [None]
  - INJURY [None]
  - UNEVALUABLE EVENT [None]
